FAERS Safety Report 11867706 (Version 8)
Quarter: 2017Q3

REPORT INFORMATION
  Report Type: Spontaneous
  Country: US (occurrence: US)
  Receive Date: 20151224
  Receipt Date: 20170704
  Transmission Date: 20171127
  Serious: Yes (Hospitalization, Other)
  Sender: FDA-Public Use
  Company Number: US-ASTRAZENECA-2015SF28134

PATIENT
  Age: 24043 Day
  Sex: Male

DRUGS (37)
  1. FLUOXETINE HYDROCHLORIDE. [Concomitant]
     Active Substance: FLUOXETINE HYDROCHLORIDE
     Indication: DEPRESSION
     Dates: start: 20160418
  2. WARFARIN [Concomitant]
     Active Substance: WARFARIN
     Dates: end: 20160219
  3. HYDROCODONE [Concomitant]
     Active Substance: HYDROCODONE
  4. PLAVIX [Concomitant]
     Active Substance: CLOPIDOGREL BISULFATE
  5. FLOMAX [Concomitant]
     Active Substance: TAMSULOSIN HYDROCHLORIDE
  6. CETRIZINE [Concomitant]
     Active Substance: CETIRIZINE HYDROCHLORIDE
  7. BRILINTA [Suspect]
     Active Substance: TICAGRELOR
     Route: 048
     Dates: end: 20151203
  8. VANCOMYCIN [Concomitant]
     Active Substance: VANCOMYCIN
     Dates: start: 201604
  9. DIGOXIN. [Concomitant]
     Active Substance: DIGOXIN
  10. CORTISONE [Concomitant]
     Active Substance: CORTISONE\HYDROCORTISONE
     Indication: SHOULDER OPERATION
  11. FOLIC ACID. [Concomitant]
     Active Substance: FOLIC ACID
  12. AZITHROMYCIN ANHYDROUS. [Concomitant]
     Active Substance: AZITHROMYCIN ANHYDROUS
  13. TRADJENTA [Concomitant]
     Active Substance: LINAGLIPTIN
  14. PROBIOTIC [Concomitant]
     Active Substance: PROBIOTICS NOS
  15. BUMEX [Concomitant]
     Active Substance: BUMETANIDE
  16. METOPROLOL SUCCINATE. [Suspect]
     Active Substance: METOPROLOL SUCCINATE
     Route: 048
  17. LISINOPRIL. [Suspect]
     Active Substance: LISINOPRIL
     Route: 048
  18. METOPROLOL TARTRATE. [Suspect]
     Active Substance: METOPROLOL TARTRATE
     Indication: ATRIAL FIBRILLATION
     Route: 048
  19. MUCINEX [Concomitant]
     Active Substance: GUAIFENESIN
  20. ONDANSETRON [Concomitant]
     Active Substance: ONDANSETRON
  21. SPIRONOLACTONE. [Concomitant]
     Active Substance: SPIRONOLACTONE
  22. SYNTHROID [Concomitant]
     Active Substance: LEVOTHYROXINE SODIUM
  23. PEPCID [Concomitant]
     Active Substance: FAMOTIDINE
  24. MVI [Concomitant]
     Active Substance: VITAMINS
  25. DICYCLOMINE [Concomitant]
     Active Substance: DICYCLOMINE HYDROCHLORIDE
  26. BABY ASPIRIN [Concomitant]
     Active Substance: ASPIRIN
     Dosage: 81.0MG UNKNOWN
  27. LASIX [Concomitant]
     Active Substance: FUROSEMIDE
  28. ATORVASTATIN CALCIUM. [Concomitant]
     Active Substance: ATORVASTATIN CALCIUM
  29. COUMADIN [Concomitant]
     Active Substance: WARFARIN SODIUM
  30. POTASSIUM [Concomitant]
     Active Substance: POTASSIUM
  31. AFRIN [Concomitant]
     Active Substance: OXYMETAZOLINE
  32. FLUOXETINE HYDROCHLORIDE. [Concomitant]
     Active Substance: FLUOXETINE HYDROCHLORIDE
     Indication: DEPRESSION
  33. LEVOPHED [Concomitant]
     Active Substance: NOREPINEPHRINE BITARTRATE
     Indication: BLOOD PRESSURE INCREASED
  34. CORTICOSTEROID NOS [Concomitant]
     Active Substance: CORTICOSTEROID NOS
     Indication: BLOOD PRESSURE INCREASED
  35. IRON [Concomitant]
     Active Substance: IRON
  36. PROTONIX [Concomitant]
     Active Substance: PANTOPRAZOLE SODIUM
  37. METOLAZONE. [Concomitant]
     Active Substance: METOLAZONE

REACTIONS (39)
  - Internal haemorrhage [Recovered/Resolved]
  - Sepsis [Recovered/Resolved]
  - Subcutaneous abscess [Recovered/Resolved]
  - Paraesthesia [Not Recovered/Not Resolved]
  - Cardiac failure congestive [Not Recovered/Not Resolved]
  - Staphylococcal infection [Not Recovered/Not Resolved]
  - Retroperitoneal haematoma [Recovered/Resolved]
  - Loss of consciousness [Recovered/Resolved]
  - Rotator cuff syndrome [Unknown]
  - Productive cough [Recovered/Resolved]
  - Dysgeusia [Recovered/Resolved]
  - Pulmonary oedema [Recovered/Resolved]
  - Skin ulcer [Recovered/Resolved]
  - Nasal congestion [Recovered/Resolved]
  - Nasopharyngitis [Recovered/Resolved]
  - Weight decreased [Recovered/Resolved]
  - Sinusitis [Recovered/Resolved]
  - Intestinal obstruction [Recovered/Resolved]
  - Nephrolithiasis [Recovered/Resolved]
  - Thrombosis [Recovered/Resolved]
  - Body temperature decreased [Recovered/Resolved]
  - Abdominal infection [Recovered/Resolved]
  - Skin disorder [Recovered/Resolved]
  - Decubitus ulcer [Recovered/Resolved]
  - Dysphagia [Recovered/Resolved]
  - Urinary tract infection [Recovered/Resolved]
  - Injury [Recovered/Resolved]
  - Haemoglobin decreased [Recovered/Resolved]
  - Clostridium difficile infection [Recovered/Resolved]
  - Peripheral swelling [Recovered/Resolved]
  - Hypoproteinaemia [Recovered/Resolved]
  - Pleural effusion [Recovered/Resolved]
  - Dyspnoea [Recovered/Resolved]
  - Impaired healing [Recovered/Resolved]
  - Constipation [Recovered/Resolved]
  - Atelectasis [Recovered/Resolved]
  - Malnutrition [Recovered/Resolved]
  - Diarrhoea [Recovered/Resolved]
  - Oedema [Recovered/Resolved]

NARRATIVE: CASE EVENT DATE: 20160301
